FAERS Safety Report 21676996 (Version 1)
Quarter: 2022Q4

REPORT INFORMATION
  Report Type: Report from Study
  Country: US (occurrence: US)
  Receive Date: 20221203
  Receipt Date: 20221203
  Transmission Date: 20230113
  Serious: Yes (Other)
  Sender: FDA-Public Use
  Company Number: US-ABBVIE-4219899

PATIENT
  Age: 45 Year
  Sex: Female

DRUGS (1)
  1. SKYRIZI [Suspect]
     Active Substance: RISANKIZUMAB-RZAA
     Indication: Psoriasis
     Dosage: CESSATION DATE FOR EVENT OF COVID-19 AND EXTREME FATIGUE WAS 2022
     Route: 058

REACTIONS (9)
  - Hysterectomy [Recovering/Resolving]
  - Injection site bruising [Recovered/Resolved]
  - Ear infection [Recovered/Resolved]
  - COVID-19 [Recovered/Resolved]
  - Fatigue [Recovering/Resolving]
  - Back injury [Not Recovered/Not Resolved]
  - Pneumonia respiratory syncytial viral [Recovered/Resolved]
  - Ovarian cyst [Recovering/Resolving]
  - Respiratory tract infection [Recovered/Resolved]

NARRATIVE: CASE EVENT DATE: 20220201
